FAERS Safety Report 4655037-4 (Version None)
Quarter: 2005Q2

REPORT INFORMATION
  Report Type: 
  Country: None (occurrence: None)
  Receive Date: 20050504
  Receipt Date: 20050420
  Transmission Date: 20051028
  Serious: Yes (Hospitalization, Other)
  Sender: FDA-Public Use
  Company Number: 2005063412

PATIENT
  Age: 74 Year
  Sex: Female
  Weight: 95.2554 kg

DRUGS (9)
  1. CELEBREX [Suspect]
     Indication: ARTHRITIS
     Dosage: ORAL
     Route: 048
  2. BEXTRA [Suspect]
     Indication: ARTHRITIS
     Dosage: 10 MG (10 MG, 1IN 1 D), ORAL
     Route: 048
     Dates: start: 20040201, end: 20050411
  3. EZETIMIBE/SIMVASTATIN (EZETIMIBE, SIMVASTATIN) [Concomitant]
  4. LOSARATAN POTASSIUM (LOSARTAN POTASSIUM) [Concomitant]
  5. SULTOPRIDE (SULTOPRIDE) [Concomitant]
  6. LEVOTHYROXINE SODIUM [Concomitant]
  7. DIGOXIN [Concomitant]
  8. WARFARIN SODIUM [Concomitant]
  9. NITROGLYCERIN [Concomitant]

REACTIONS (6)
  - ANXIETY [None]
  - ATRIAL FIBRILLATION [None]
  - DIABETES MELLITUS [None]
  - MITRAL VALVE STENOSIS [None]
  - MUSCLE SPASMS [None]
  - MYOCARDIAL INFARCTION [None]
